FAERS Safety Report 7176297-4 (Version None)
Quarter: 2010Q4

REPORT INFORMATION
  Report Type: 
  Country: None (occurrence: None)
  Receive Date: 20101220
  Receipt Date: 20101213
  Transmission Date: 20110411
  Serious: No
  Sender: FDA-Public Use
  Company Number: US-PFIZER INC-2010171457

PATIENT

DRUGS (2)
  1. AMLODIPINE BESYLATE [Suspect]
  2. LIPITOR [Suspect]

REACTIONS (1)
  - FEELING ABNORMAL [None]
